FAERS Safety Report 5199156-5 (Version None)
Quarter: 2006Q4

REPORT INFORMATION
  Report Type: 
  Country: None (occurrence: None)
  Receive Date: 20060919
  Receipt Date: 20060803
  Transmission Date: 20070319
  Serious: No
  Sender: FDA-Public Use
  Company Number: 2006US001902

PATIENT
  Sex: Female

DRUGS (3)
  1. VESICARE [Suspect]
     Indication: URINARY TRACT DISORDER
     Dosage: 5 MG
  2. MICARDIS [Concomitant]
  3. ARICEPT [Concomitant]

REACTIONS (1)
  - CONSTIPATION [None]
